FAERS Safety Report 5394764-0 (Version None)
Quarter: 2007Q3

REPORT INFORMATION
  Report Type: 
  Country: None (occurrence: None)
  Receive Date: 20070723
  Receipt Date: 20070711
  Transmission Date: 20080115
  Serious: Yes (Hospitalization, Other)
  Sender: FDA-Public Use
  Company Number: US-PFIZER INC-2007057822

PATIENT
  Sex: Female
  Weight: 61.7 kg

DRUGS (11)
  1. SINEQUAN [Suspect]
     Indication: DEPRESSION
     Dates: start: 19820101, end: 20060101
  2. ANTIHYPERTENSIVES [Concomitant]
  3. PRAVASTATIN SODIUM [Concomitant]
  4. DIURETICS [Concomitant]
  5. INTERLEUKINS [Concomitant]
  6. PROZAC [Concomitant]
  7. VITAMIN CAP [Concomitant]
  8. CALCIUM CHLORIDE [Concomitant]
  9. LIPITOR [Concomitant]
  10. ACETYLSALICYLIC ACID SRT [Concomitant]
  11. VALIUM [Concomitant]

REACTIONS (2)
  - DRUG WITHDRAWAL SYNDROME [None]
  - STOMACH DISCOMFORT [None]
